FAERS Safety Report 17212627 (Version 2)
Quarter: 2020Q1

REPORT INFORMATION
  Report Type: Spontaneous
  Country: US (occurrence: US)
  Receive Date: 20191230
  Receipt Date: 20200109
  Transmission Date: 20200409
  Serious: Yes (Other)
  Sender: FDA-Public Use
  Company Number: US-GLENMARK PHARMACEUTICALS-2019GMK044984

PATIENT

DRUGS (2)
  1. METOPROLOL TARTRATE. [Concomitant]
     Active Substance: METOPROLOL TARTRATE
     Indication: HEART RATE IRREGULAR
     Dosage: UNK, BID (2X A DAY)
     Route: 065
  2. IMIQUIMOD CREAM USP, 5% [Suspect]
     Active Substance: IMIQUIMOD
     Indication: MALIGNANT MELANOMA
     Dosage: UNK, HS (ONCE AT NIGHT FOR 5 DAY)
     Route: 061
     Dates: start: 20191204, end: 20191209

REACTIONS (8)
  - Chest discomfort [Recovered/Resolved]
  - Asthenia [Recovered/Resolved]
  - Product use in unapproved indication [Unknown]
  - Feeling abnormal [Recovered/Resolved]
  - Thinking abnormal [Recovered/Resolved]
  - Heart rate irregular [Recovered/Resolved]
  - Aphasia [Recovered/Resolved]
  - Dizziness [Recovered/Resolved]

NARRATIVE: CASE EVENT DATE: 20191204
